FAERS Safety Report 4279186-8 (Version None)
Quarter: 2004Q1

REPORT INFORMATION
  Report Type: 
  Country: None (occurrence: None)
  Receive Date: 20040122
  Receipt Date: 20030109
  Transmission Date: 20041129
  Serious: Yes (Hospitalization)
  Sender: FDA-Public Use
  Company Number: 2003SE03367

PATIENT
  Age: 71 Year
  Sex: Female
  Weight: 59 kg

DRUGS (11)
  1. BLOPRESS [Suspect]
     Indication: HYPERTENSION
     Dosage: 4 MG QD PO
     Route: 048
     Dates: start: 20030610
  2. BLOPRESS [Suspect]
     Indication: HYPERTENSION
     Dosage: 8 MG DAILY PO
     Route: 048
     Dates: end: 20030701
  3. DILTIAZEM HYDROCHLORIDE [Concomitant]
  4. NICORANDIL [Concomitant]
  5. VALACYCLOVIR HCL [Concomitant]
  6. TAKEPRON [Concomitant]
  7. MAGNESIUM OXIDE [Concomitant]
  8. PANTETHINE [Concomitant]
  9. DOXAZOSIN MESYLATE [Concomitant]
  10. SULPERAZON [Concomitant]
  11. IMMUNOGLOBULIN HUMAN NORMAL [Concomitant]

REACTIONS (34)
  - ABDOMINAL DISTENSION [None]
  - ABDOMINAL TENDERNESS [None]
  - ANAEMIA [None]
  - ASCITES [None]
  - BIOPSY BONE MARROW ABNORMAL [None]
  - BLOOD PRESSURE INADEQUATELY CONTROLLED [None]
  - CANDIDIASIS [None]
  - CEREBRAL HAEMORRHAGE [None]
  - DECUBITUS ULCER [None]
  - DEPRESSED LEVEL OF CONSCIOUSNESS [None]
  - DISSEMINATED INTRAVASCULAR COAGULATION [None]
  - DYSPNOEA [None]
  - GALLBLADDER DISORDER [None]
  - GENERALISED OEDEMA [None]
  - HAEMATURIA [None]
  - HEPATIC FUNCTION ABNORMAL [None]
  - HERPES ZOSTER [None]
  - HYPERTENSION [None]
  - IDIOPATHIC THROMBOCYTOPENIC PURPURA [None]
  - INFERIOR VENA CAVAL OCCLUSION [None]
  - KNEE ARTHROPLASTY [None]
  - MYELODYSPLASTIC SYNDROME [None]
  - OEDEMA [None]
  - OVARIAN NEOPLASM [None]
  - PERICARDIAL EFFUSION [None]
  - PLATELET COUNT DECREASED [None]
  - PLEURAL EFFUSION [None]
  - PROTEINURIA [None]
  - PULMONARY HYPERTENSION [None]
  - PUTAMEN HAEMORRHAGE [None]
  - TENDERNESS [None]
  - THROMBOCYTOPENIA [None]
  - VENTRICULAR DYSFUNCTION [None]
  - WHITE BLOOD CELL COUNT DECREASED [None]
